FAERS Safety Report 6680706-4 (Version None)
Quarter: 2010Q2

REPORT INFORMATION
  Report Type: 
  Country: None (occurrence: None)
  Receive Date: 20100414
  Receipt Date: 20100408
  Transmission Date: 20101027
  Serious: Yes (Death)
  Sender: FDA-Public Use
  Company Number: MX-BAXTER-2010BH005536

PATIENT
  Age: 1 Month
  Sex: Male
  Weight: 3 kg

DRUGS (2)
  1. TISSUCOL/TISSEEL KIT STIM3 [Suspect]
     Indication: CARDIAC OPERATION
     Route: 042
     Dates: start: 20100224, end: 20100224
  2. TISSUCOL/TISSEEL KIT STIM3 [Suspect]
     Route: 042
     Dates: start: 20100224, end: 20100224

REACTIONS (3)
  - DRUG INEFFECTIVE [None]
  - VENTRICULAR FAILURE [None]
  - WRONG TECHNIQUE IN DRUG USAGE PROCESS [None]
